FAERS Safety Report 4968435-6 (Version None)
Quarter: 2006Q2

REPORT INFORMATION
  Report Type: 
  Country: None (occurrence: None)
  Receive Date: 20060410
  Receipt Date: 20051013
  Transmission Date: 20061013
  Serious: Yes (Hospitalization)
  Sender: FDA-Public Use
  Company Number: US-MERCK-0510USA07548

PATIENT
  Age: 58 Year
  Sex: Female
  Weight: 65 kg

DRUGS (9)
  1. VIOXX [Suspect]
     Indication: BACK PAIN
     Route: 048
     Dates: start: 20030228, end: 20040930
  2. LOTREL [Concomitant]
     Route: 065
  3. ZOCOR [Concomitant]
     Route: 065
  4. LIPITOR [Concomitant]
     Route: 065
  5. PLAVIX [Concomitant]
     Route: 065
  6. ASPIRIN [Concomitant]
     Route: 065
  7. SINGULAIR [Concomitant]
     Route: 065
  8. SEREVENT [Concomitant]
     Route: 065
  9. ALBUTEROL [Concomitant]
     Route: 065

REACTIONS (7)
  - ASTHENIA [None]
  - CORONARY ARTERY DISEASE [None]
  - EMOTIONAL DISORDER [None]
  - HYPERTENSION [None]
  - MYOCARDIAL INFARCTION [None]
  - PANIC ATTACK [None]
  - PULSE ABNORMAL [None]
